FAERS Safety Report 13897979 (Version 1)
Quarter: 2017Q3

REPORT INFORMATION
  Report Type: Spontaneous
  Country: FR (occurrence: FR)
  Receive Date: 20170823
  Receipt Date: 20170823
  Transmission Date: 20171127
  Serious: Yes (Hospitalization)
  Sender: FDA-Public Use
  Company Number: FR-TEVA-799126ROM

PATIENT
  Age: 49 Year
  Sex: Male

DRUGS (7)
  1. LOXAPINE. [Suspect]
     Active Substance: LOXAPINE
     Dosage: 100 MG/DAY
     Route: 065
  2. SODIUM VALPROATE [Concomitant]
     Active Substance: VALPROATE SODIUM
     Route: 065
  3. TROPATEPINE [Concomitant]
     Active Substance: TROPATEPINE
     Dosage: 10 MG/DAY
     Route: 065
  4. METFORMIN [Concomitant]
     Active Substance: METFORMIN HYDROCHLORIDE
     Dosage: 3000 MG/DAY
     Route: 065
  5. CLOZAPINE. [Suspect]
     Active Substance: CLOZAPINE
     Dosage: 100 MG/DAY
     Route: 065
  6. PIRIBEDIL [Concomitant]
     Active Substance: PIRIBEDIL
     Dosage: 50 MG/DAY
     Route: 065
  7. DULOXETINE. [Suspect]
     Active Substance: DULOXETINE
     Dosage: 60 MG/DAY
     Route: 065

REACTIONS (1)
  - Neuroleptic malignant syndrome [Recovered/Resolved]
